FAERS Safety Report 8434467 (Version 2)
Quarter: 2014Q2

REPORT INFORMATION
  Report Type: Spontaneous
  Country: US (occurrence: US)
  Receive Date: 20120301
  Receipt Date: 20140410
  Transmission Date: 20141212
  Serious: No
  Sender: FDA-Public Use
  Company Number: US-PFIZER INC-2012051203

PATIENT
  Age: 51 Year
  Sex: Female

DRUGS (5)
  1. IBUPROFEN [Suspect]
     Dosage: UNK
     Route: 065
  2. NEURONTIN [Suspect]
     Dosage: UNK
  3. ASPIRIN [Suspect]
     Dosage: UNK
     Route: 065
  4. LORTAB [Suspect]
     Dosage: UNK
     Route: 065
  5. NOROXIN [Suspect]
     Dosage: UNK
     Route: 065

REACTIONS (1)
  - Drug hypersensitivity [Unknown]
